FAERS Safety Report 9282762 (Version 2)
Quarter: 2013Q2

REPORT INFORMATION
  Report Type: Spontaneous
  Country: CL (occurrence: CL)
  Receive Date: 20130510
  Receipt Date: 20130510
  Transmission Date: 20140414
  Serious: Yes (Hospitalization)
  Sender: FDA-Public Use
  Company Number: PHHY2013CL039734

PATIENT
  Age: 30 Year
  Sex: Female

DRUGS (9)
  1. LEPONEX / CLOZARIL (CLOZAPINE) [Suspect]
     Indication: POST-TRAUMATIC STRESS DISORDER
     Dosage: 200 MG, DAILY
     Dates: start: 20050103
  2. LEPONEX / CLOZARIL (CLOZAPINE) [Suspect]
     Dosage: 400 MG, DAILY (ONE IN THE MORNING AND 3 AT NIGHT)
  3. LEPONEX / CLOZARIL (CLOZAPINE) [Suspect]
     Dosage: 50 MG, DAILY
  4. LEPONEX / CLOZARIL (CLOZAPINE) [Suspect]
     Dosage: 150 MG, UNK
  5. LEPONEX / CLOZARIL (CLOZAPINE) [Suspect]
     Dosage: 200 MG, UNK
  6. LEPONEX / CLOZARIL (CLOZAPINE) [Suspect]
     Dosage: 250 MG, UNK
  7. SERTRALINE [Concomitant]
     Dosage: 1 DF, BID (TWICE A DAY IN THE MORNING)
  8. CARBORON [Concomitant]
     Dosage: 3.5 DF, DAILY (ONE AND A HALF IN THE MORNING AND TWO TABLET AT NIGHT)
  9. CLONAZEPAM [Concomitant]
     Dosage: 4 DF, DAILY

REACTIONS (5)
  - Intentional self-injury [Unknown]
  - Condition aggravated [Not Recovered/Not Resolved]
  - Incorrect dose administered [Unknown]
  - Grand mal convulsion [Not Recovered/Not Resolved]
  - Aggression [Unknown]
